FAERS Safety Report 25086700 (Version 1)
Quarter: 2025Q1

REPORT INFORMATION
  Report Type: Spontaneous
  Country: GB (occurrence: GB)
  Receive Date: 20250318
  Receipt Date: 20250318
  Transmission Date: 20250409
  Serious: Yes (Hospitalization, Other)
  Sender: RANBAXY
  Company Number: GB-MHRA-MED-202503031658078290-QVYBC

PATIENT
  Age: 51 Year
  Sex: Male
  Weight: 87 kg

DRUGS (2)
  1. ROSUVASTATIN [Suspect]
     Active Substance: ROSUVASTATIN
     Indication: Product used for unknown indication
     Route: 065
     Dates: start: 20250205, end: 20250225
  2. SERTRALINE [Concomitant]
     Active Substance: SERTRALINE HYDROCHLORIDE
     Indication: Product used for unknown indication
     Route: 065
     Dates: start: 20230401

REACTIONS (8)
  - Jaundice [Not Recovered/Not Resolved]
  - Hepatitis [Not Recovered/Not Resolved]
  - Myalgia [Recovering/Resolving]
  - Hyperglycaemia [Not Recovered/Not Resolved]
  - Headache [Not Recovered/Not Resolved]
  - Arthralgia [Recovering/Resolving]
  - Chromaturia [Not Recovered/Not Resolved]
  - Faeces pale [Recovered/Resolved]

NARRATIVE: CASE EVENT DATE: 20250226
